FAERS Safety Report 5691306-7 (Version None)
Quarter: 2008Q1

REPORT INFORMATION
  Report Type: 
  Country: None (occurrence: None)
  Receive Date: 20080331
  Receipt Date: 20080321
  Transmission Date: 20080703
  Serious: Yes (Other)
  Sender: FDA-Public Use
  Company Number: CHPA2008US05222

PATIENT
  Sex: Male

DRUGS (1)
  1. NODOZ (NCH)(CAFFEINE) CAPLET [Suspect]
     Dosage: 1200 MG, ONCE/SINGLE, ORAL
     Route: 048
     Dates: start: 20080321, end: 20080321

REACTIONS (3)
  - DYSSTASIA [None]
  - INCORRECT DOSE ADMINISTERED [None]
  - TREMOR [None]
